FAERS Safety Report 6190619-2 (Version None)
Quarter: 2009Q2

REPORT INFORMATION
  Report Type: 
  Country: None (occurrence: None)
  Receive Date: 20090514
  Receipt Date: 20090325
  Transmission Date: 20091009
  Serious: No
  Sender: FDA-Public Use
  Company Number: US-BRISTOL-MYERS SQUIBB COMPANY-14559843

PATIENT

DRUGS (1)
  1. IXEMPRA KIT [Suspect]
     Dosage: TAKEN 3 CYCLES

REACTIONS (2)
  - OEDEMA PERIPHERAL [None]
  - VEIN DISCOLOURATION [None]
